FAERS Safety Report 8345153-8 (Version None)
Quarter: 2012Q2

REPORT INFORMATION
  Report Type: 
  Country: None (occurrence: None)
  Receive Date: 20120508
  Receipt Date: 20120423
  Transmission Date: 20120825
  Serious: Yes (Other)
  Sender: FDA-Public Use
  Company Number: US-ENDO PHARMACEUTICALS INC.-MSER20120041

PATIENT
  Sex: Male

DRUGS (2)
  1. ROXICODONE [Concomitant]
     Indication: BREAKTHROUGH PAIN
     Route: 048
  2. MORPHINE SULFATE [Suspect]
     Indication: PAIN
     Route: 048
     Dates: start: 20120301

REACTIONS (5)
  - DIARRHOEA [None]
  - VOMITING [None]
  - INAPPROPRIATE SCHEDULE OF DRUG ADMINISTRATION [None]
  - COLD SWEAT [None]
  - DRUG INEFFECTIVE [None]
